FAERS Safety Report 18446875 (Version 1)
Quarter: 2020Q4

REPORT INFORMATION
  Report Type: Spontaneous
  Country: US (occurrence: US)
  Receive Date: 20201030
  Receipt Date: 20201030
  Transmission Date: 20210114
  Serious: No
  Sender: FDA-Public Use
  Company Number: US-PFIZER INC-2020419411

PATIENT
  Age: 62 Year
  Sex: Female
  Weight: 79.38 kg

DRUGS (3)
  1. LYRICA [Suspect]
     Active Substance: PREGABALIN
     Dosage: 75 MG, 2X/DAY
     Route: 048
  2. GABAPENTIN. [Concomitant]
     Active Substance: GABAPENTIN
     Dosage: UNK
  3. LYRICA [Suspect]
     Active Substance: PREGABALIN
     Indication: FIBROMYALGIA
     Dosage: 150 MG, 2X/DAY (75MG, TWO CAPSULES TWICE DAILY)
     Route: 048

REACTIONS (9)
  - Product prescribing error [Unknown]
  - Blood cholesterol increased [Unknown]
  - Diplopia [Unknown]
  - Nausea [Unknown]
  - Vision blurred [Unknown]
  - Dizziness [Unknown]
  - Malaise [Unknown]
  - Insomnia [Unknown]
  - Fatigue [Unknown]

NARRATIVE: CASE EVENT DATE: 2019
